FAERS Safety Report 4319317-4 (Version None)
Quarter: 2004Q1

REPORT INFORMATION
  Report Type: 
  Country: None (occurrence: None)
  Receive Date: 20040318
  Receipt Date: 20040318
  Transmission Date: 20041129
  Serious: Yes (Other)
  Sender: FDA-Public Use
  Company Number: None

PATIENT
  Sex: Male
  Weight: 67.586 kg

DRUGS (13)
  1. GATIFLOXACIN [Suspect]
     Indication: URINARY TRACT INFECTION
     Dosage: 200 MG DAILY ORAL
     Route: 048
     Dates: start: 20040225, end: 20040310
  2. LEVOTHYROXINE SODIUM [Concomitant]
  3. FELODIPINE SA [Concomitant]
  4. GLIPIZIDE [Concomitant]
  5. TRAVAPROST [Concomitant]
  6. COSOPT [Concomitant]
  7. TERAZOSIN HCL [Concomitant]
  8. PROBENECID [Concomitant]
  9. OMPERAZOLE [Concomitant]
  10. METOPROLOL [Concomitant]
  11. LISINOPRIL [Concomitant]
  12. TRAZODONE [Concomitant]
  13. NITROGLYCERIN SL [Concomitant]

REACTIONS (2)
  - CHEST PAIN [None]
  - MENTAL STATUS CHANGES [None]
